FAERS Safety Report 7596663-2 (Version None)
Quarter: 2011Q3

REPORT INFORMATION
  Report Type: 
  Country: None (occurrence: None)
  Receive Date: 20110708
  Receipt Date: 20110628
  Transmission Date: 20111222
  Serious: Yes (Life-Threatening, Hospitalization, Other)
  Sender: FDA-Public Use
  Company Number: RO-CELGENEUS-135-21880-11042163

PATIENT
  Sex: Male
  Weight: 79 kg

DRUGS (15)
  1. SPIRONOLACTONE [Concomitant]
     Indication: OEDEMA
     Dosage: 50 MILLIGRAM
     Route: 048
     Dates: start: 20110126
  2. HELICID [Concomitant]
     Indication: PEPTIC ULCER
     Dosage: 40 MILLIGRAM
     Route: 048
     Dates: start: 20110114, end: 20110124
  3. CLOTRIMAZOLE [Concomitant]
     Dosage: .05 MILLIGRAM
     Route: 061
     Dates: start: 20110308, end: 20110316
  4. LANSOPRAZOL [Concomitant]
     Indication: PRODUCT USED FOR UNKNOWN INDICATION
     Dosage: 15 MILLIGRAM
     Route: 048
     Dates: start: 20110123, end: 20110401
  5. EPOETINUM BETA [Concomitant]
     Dosage: 1071.4286 IU (INTERNATIONAL UNIT)
     Route: 058
     Dates: start: 20110126
  6. CIPROFLOXACIN [Concomitant]
     Dosage: 500 MILLIGRAM
     Route: 048
     Dates: start: 20110123, end: 20110401
  7. ACYCLOVIR [Concomitant]
     Indication: ANTIVIRAL PROPHYLAXIS
     Dosage: 400 MILLIGRAM
     Route: 048
     Dates: start: 20110123, end: 20110221
  8. DEXAMETHASONE [Suspect]
     Indication: MULTIPLE MYELOMA
     Dosage: 40 MILLIGRAM
     Route: 065
     Dates: start: 20110124, end: 20110221
  9. CARFILZOMIB [Suspect]
     Indication: MULTIPLE MYELOMA
     Dosage: 40 MILLIGRAM
     Route: 065
     Dates: start: 20110124, end: 20110125
  10. CARFILZOMIB [Suspect]
     Dosage: 54 MILLIGRAM
     Route: 065
     Dates: start: 20110131, end: 20110308
  11. DEXAMETHASONE [Suspect]
     Dosage: 40 MILLIGRAM
     Route: 065
     Dates: start: 20110228, end: 20110328
  12. CARFILZOMIB [Suspect]
     Dosage: 54 MILLIGRAM
     Route: 065
     Dates: start: 20110321, end: 20110325
  13. ASPIRIN [Concomitant]
     Indication: ANTICOAGULANT THERAPY
     Dosage: 100 MILLIGRAM
     Route: 048
     Dates: start: 20110123, end: 20110129
  14. REVLIMID [Suspect]
     Indication: MULTIPLE MYELOMA
     Dosage: 25 MILLIGRAM
     Route: 048
     Dates: start: 20110124, end: 20110331
  15. ZOMETA [Concomitant]
     Dosage: .1429 MILLIGRAM
     Route: 051
     Dates: start: 20110123, end: 20110220

REACTIONS (14)
  - INTESTINAL OBSTRUCTION [None]
  - RED BLOOD CELL COUNT DECREASED [None]
  - C-REACTIVE PROTEIN INCREASED [None]
  - HYPOCALCAEMIA [None]
  - OTITIS MEDIA FUNGAL [None]
  - ELECTROLYTE IMBALANCE [None]
  - HAEMORRHOIDS [None]
  - HAEMATOCRIT DECREASED [None]
  - HYPOALBUMINAEMIA [None]
  - HYPOKALAEMIA [None]
  - HYPOPROTEINAEMIA [None]
  - HAEMOGLOBIN DECREASED [None]
  - RECTAL HAEMORRHAGE [None]
  - BLOOD SODIUM DECREASED [None]
